FAERS Safety Report 6093103-X (Version None)
Quarter: 2009Q1

REPORT INFORMATION
  Report Type: 
  Country: None (occurrence: None)
  Receive Date: 20090226
  Receipt Date: 20090219
  Transmission Date: 20090719
  Serious: Yes (Disabling)
  Sender: FDA-Public Use
  Company Number: DE-JNJFOC-20090204817

PATIENT
  Age: 74 Year
  Sex: Male

DRUGS (6)
  1. TAVANIC [Suspect]
     Route: 048
  2. TAVANIC [Suspect]
     Indication: BRONCHITIS
     Route: 048
  3. LORZAAR [Concomitant]
     Route: 065
  4. AQUAPHOR [Concomitant]
     Route: 065
  5. DICLOFENAC [Concomitant]
     Route: 065
  6. XIPAMIDE [Concomitant]
     Route: 065

REACTIONS (4)
  - HAEMATOMA [None]
  - INTERMITTENT CLAUDICATION [None]
  - RHABDOMYOLYSIS [None]
  - TENDON PAIN [None]
